FAERS Safety Report 9019496 (Version 1)
Quarter: 2013Q1

REPORT INFORMATION
  Report Type: Spontaneous
  Country: US (occurrence: US)
  Receive Date: 20130118
  Receipt Date: 20130118
  Transmission Date: 20140127
  Serious: Yes (Hospitalization)
  Sender: FDA-Public Use
  Company Number: US-SANOFI-AVENTIS-2012SA075461

PATIENT
  Age: 67 Year
  Sex: Female

DRUGS (7)
  1. LASIX [Suspect]
     Indication: OEDEMA DUE TO CARDIAC DISEASE
     Route: 048
     Dates: start: 201104, end: 201209
  2. AFLIBERCEPT [Concomitant]
     Indication: DIABETIC RETINAL OEDEMA
     Route: 031
     Dates: start: 20110824
  3. ASPIRIN [Concomitant]
     Indication: CARDIOVASCULAR EVENT PROPHYLAXIS
     Dates: start: 1991
  4. METOPROLOL [Concomitant]
     Indication: TACHYCARDIA
     Dates: start: 201105
  5. KLOR-CON [Concomitant]
     Indication: HYPOKALAEMIA
     Dates: start: 201104
  6. NOVOLOG [Concomitant]
     Indication: DIABETES MELLITUS
     Route: 058
     Dates: start: 1995
  7. DABIGATRAN ETEXILATE [Concomitant]
     Indication: ATRIAL FIBRILLATION
     Route: 048
     Dates: start: 20120828

REACTIONS (3)
  - Gastroenteritis [Recovered/Resolved]
  - Dehydration [Recovered/Resolved]
  - Renal failure acute [Recovered/Resolved]
